FAERS Safety Report 11058696 (Version 1)
Quarter: 2015Q2

REPORT INFORMATION
  Report Type: Report from Study
  Country: US (occurrence: None)
  Receive Date: 20150420
  Receipt Date: 20150420
  Transmission Date: 20150821
  Serious: No
  Sender: FDA-Public Use
  Company Number: AEGR001083

PATIENT
  Age: 57 Year
  Sex: Female
  Weight: 49.4 kg

DRUGS (3)
  1. LOVAZA (OMEGA-3 ACIC ETHYL ESTER) [Concomitant]
  2. JUXTAPID [Suspect]
     Active Substance: LOMITAPIDE MESYLATE
     Indication: TYPE IIA HYPERLIPIDAEMIA
     Route: 048
     Dates: start: 20141231
  3. WELCHOL (COLESEVELAM HYROCHLORIDE) [Concomitant]

REACTIONS (2)
  - Nausea [None]
  - Vomiting [None]

NARRATIVE: CASE EVENT DATE: 20150101
